FAERS Safety Report 16344272 (Version 2)
Quarter: 2019Q2

REPORT INFORMATION
  Report Type: Spontaneous
  Country: US (occurrence: US)
  Receive Date: 20190522
  Receipt Date: 20190524
  Transmission Date: 20190711
  Serious: Yes (Other)
  Sender: FDA-Public Use
  Company Number: US-PFIZER INC-2019214576

PATIENT
  Age: 55 Year
  Sex: Male
  Weight: 127.1 kg

DRUGS (1)
  1. VIAGRA [Suspect]
     Active Substance: SILDENAFIL CITRATE
     Indication: DIABETES MELLITUS
     Dosage: 100 MG (100MG TABLET BY MOUTH BEFORE SEX)
     Route: 048

REACTIONS (2)
  - Lung neoplasm malignant [Unknown]
  - Product use in unapproved indication [Unknown]
